FAERS Safety Report 10062825 (Version 2)
Quarter: 2014Q2

REPORT INFORMATION
  Report Type: Spontaneous
  Country: US (occurrence: US)
  Receive Date: 20140407
  Receipt Date: 20140523
  Transmission Date: 20141212
  Serious: Yes (Hospitalization)
  Sender: FDA-Public Use
  Company Number: US-US-EMD SERONO, INC.-7280413

PATIENT
  Age: 61 Year
  Sex: Male
  Weight: 113 kg

DRUGS (1)
  1. REBIF [Suspect]
     Indication: MULTIPLE SCLEROSIS
     Route: 058
     Dates: start: 2012

REACTIONS (2)
  - Hypoaesthesia [Unknown]
  - Multiple sclerosis relapse [Recovered/Resolved]
